FAERS Safety Report 7543461-1 (Version None)
Quarter: 2011Q2

REPORT INFORMATION
  Report Type: 
  Country: None (occurrence: None)
  Receive Date: 20110613
  Receipt Date: 20110531
  Transmission Date: 20111010
  Serious: Yes (Hospitalization)
  Sender: FDA-Public Use
  Company Number: PHHY2011FI26627

PATIENT
  Age: 86 Year
  Sex: Female

DRUGS (13)
  1. TENOX [Concomitant]
     Dosage: UNK
  2. EXELON [Suspect]
     Indication: DEMENTIA ALZHEIMER'S TYPE
     Dosage: 1.5 MG, BID
     Route: 048
  3. SPIRESIS [Concomitant]
     Dosage: 0.5 DF, QD
  4. EXELON [Suspect]
     Indication: DEMENTIA ALZHEIMER'S TYPE
     Dosage: UNK
     Dates: start: 20100920
  5. NITROSID [Concomitant]
     Dosage: 10 MG, BID
  6. POTASSIUM CHLORIDE [Concomitant]
     Dosage: 1 G, BID
  7. PANADOL FORTE [Concomitant]
     Dosage: 0.5+0.5+1 TABLET A DAY
  8. FERROUS GLYCINE SULFATE [Concomitant]
     Dosage: UNK
  9. WARFARIN SODIUM [Concomitant]
     Dosage: UNK
  10. RAMIPRIL [Concomitant]
     Dosage: 5 MG, QD
  11. OBSIDAN [Concomitant]
     Dosage: UNK
  12. HYDREX [Concomitant]
     Dosage: 25 MG, QD
  13. BISOPROLOL FUMARATE [Concomitant]
     Dosage: 5 MG, QD

REACTIONS (7)
  - SKIN EXFOLIATION [None]
  - EOSINOPHIL COUNT INCREASED [None]
  - ECZEMA [None]
  - ERYTHEMA [None]
  - APPLICATION SITE RASH [None]
  - DERMATITIS EXFOLIATIVE [None]
  - DANDRUFF [None]
